FAERS Safety Report 6651568-6 (Version None)
Quarter: 2010Q1

REPORT INFORMATION
  Report Type: 
  Country: None (occurrence: None)
  Receive Date: 20100325
  Receipt Date: 20100322
  Transmission Date: 20100710
  Serious: Yes (Hospitalization)
  Sender: FDA-Public Use
  Company Number: B0641898A

PATIENT
  Age: 35 Year
  Sex: Male

DRUGS (2)
  1. AUGMENTIN [Suspect]
     Indication: PYELONEPHRITIS
     Dosage: 1G THREE TIMES PER DAY
     Route: 048
     Dates: start: 20090912, end: 20090912
  2. TEGRETOL [Suspect]
     Indication: EPILEPSY
     Dosage: 200MG TWICE PER DAY
     Route: 048
     Dates: start: 19990101

REACTIONS (3)
  - CLONUS [None]
  - GRAND MAL CONVULSION [None]
  - HYPOAESTHESIA [None]
